FAERS Safety Report 16042773 (Version 4)
Quarter: 2019Q4

REPORT INFORMATION
  Report Type: Spontaneous
  Country: BR (occurrence: BR)
  Receive Date: 20190306
  Receipt Date: 20191205
  Transmission Date: 20200122
  Serious: Yes (Hospitalization, Other)
  Sender: FDA-Public Use
  Company Number: BR-PFIZER INC-2019075677

PATIENT
  Age: 64 Year
  Sex: Female

DRUGS (5)
  1. LIPITOR [Suspect]
     Active Substance: ATORVASTATIN CALCIUM
     Dosage: UNK
     Dates: start: 2019, end: 2019
  2. NATRILIX [INDAPAMIDE] [Concomitant]
     Dosage: UNK
  3. GALVUS [Concomitant]
     Active Substance: VILDAGLIPTIN
     Dosage: UNK
  4. LIPITOR [Suspect]
     Active Substance: ATORVASTATIN CALCIUM
     Indication: BLOOD CHOLESTEROL INCREASED
     Dosage: 1 DF, DAILY (NIGHT)
     Dates: start: 201902, end: 201902
  5. PURAN [Concomitant]
     Active Substance: LEVOTHYROXINE SODIUM
     Dosage: UNK

REACTIONS (19)
  - Chromaturia [Recovered/Resolved]
  - Pyrexia [Recovered/Resolved]
  - Pain [Unknown]
  - Malaise [Unknown]
  - Blood pressure decreased [Recovered/Resolved]
  - Blood cholesterol increased [Recovered/Resolved]
  - Hepatitis [Recovered/Resolved]
  - Dry skin [Unknown]
  - Blood cholesterol abnormal [Unknown]
  - Hepatic pain [Recovering/Resolving]
  - Yellow skin [Unknown]
  - Abdominal pain upper [Recovered/Resolved]
  - Abdominal discomfort [Recovered/Resolved]
  - Abdominal pain [Recovering/Resolving]
  - Dysentery [Unknown]
  - Wrong technique in product usage process [Unknown]
  - Agitation [Recovered/Resolved]
  - Nausea [Recovered/Resolved]
  - Pruritus [Recovered/Resolved]

NARRATIVE: CASE EVENT DATE: 2019
